FAERS Safety Report 7630817-1 (Version None)
Quarter: 2011Q3

REPORT INFORMATION
  Report Type: 
  Country: None (occurrence: None)
  Receive Date: 20110723
  Receipt Date: 20110721
  Transmission Date: 20111222
  Serious: Yes (Other)
  Sender: FDA-Public Use
  Company Number: IN-ABBOTT-11P-078-0839943-00

PATIENT
  Age: 5 Year
  Sex: Male
  Weight: 15 kg

DRUGS (3)
  1. OXYGEN [Concomitant]
     Indication: INDUCTION OF ANAESTHESIA
     Dosage: WITH SEVOFLURANE
  2. SEVOFLURANE [Suspect]
     Indication: INDUCTION OF ANAESTHESIA
     Dosage: INCREASED BY 2% EVERY MINUTE UP TO 8%
  3. MIDAZOLAM HCL [Concomitant]
     Indication: PREMEDICATION
     Dosage: 30 MINUTES BEFORE SURGERY
     Route: 048

REACTIONS (1)
  - NODAL RHYTHM [None]
